FAERS Safety Report 8528837-8 (Version None)
Quarter: 2012Q3

REPORT INFORMATION
  Report Type: 
  Country: None (occurrence: None)
  Receive Date: 20120723
  Receipt Date: 20120719
  Transmission Date: 20120928
  Serious: No
  Sender: FDA-Public Use
  Company Number: US-PFIZER INC-2012175723

PATIENT
  Sex: Female
  Weight: 58.957 kg

DRUGS (3)
  1. AMFETAMINE/DEXAMFETAMINE [Concomitant]
     Indication: ATTENTION DEFICIT/HYPERACTIVITY DISORDER
     Dosage: 10 MG, DAILY
     Dates: start: 20070101
  2. CHANTIX [Suspect]
     Dosage: UNK
     Dates: start: 20120501, end: 20120602
  3. CHANTIX [Suspect]
     Indication: SMOKING CESSATION THERAPY
     Dosage: 0.50 MG, DAILY
     Dates: start: 20120502, end: 20120501

REACTIONS (5)
  - NAUSEA [None]
  - MOOD SWINGS [None]
  - DEPRESSED MOOD [None]
  - CRYING [None]
  - ABNORMAL DREAMS [None]
